FAERS Safety Report 6763250-5 (Version None)
Quarter: 2010Q2

REPORT INFORMATION
  Report Type: 
  Country: None (occurrence: None)
  Receive Date: 20100608
  Receipt Date: 20100608
  Transmission Date: 20101027
  Serious: Yes (Death)
  Sender: FDA-Public Use
  Company Number: None

PATIENT
  Age: 92 Year
  Sex: Male
  Weight: 68.0396 kg

DRUGS (7)
  1. HALOPERIDOL [Suspect]
     Indication: ABNORMAL BEHAVIOUR
     Dosage: 1 MG EVERY 4 HOURS IV
     Route: 042
     Dates: start: 20100424, end: 20100425
  2. HALOPERIDOL [Suspect]
     Indication: DEMENTIA
     Dosage: 1 MG EVERY 4 HOURS IV
     Route: 042
     Dates: start: 20100424, end: 20100425
  3. HALOPERIDOL [Suspect]
     Indication: ABNORMAL BEHAVIOUR
     Dosage: 1 MG EVERY 4 HOURS IV
     Route: 042
     Dates: start: 20100425, end: 20100425
  4. HALOPERIDOL [Suspect]
     Indication: DEMENTIA
     Dosage: 1 MG EVERY 4 HOURS IV
     Route: 042
     Dates: start: 20100425, end: 20100425
  5. IV NORMAL SALINE [Concomitant]
  6. IV PROTONICS [Concomitant]
  7. IV VANCOMYCIN/ZOSYN [Concomitant]

REACTIONS (5)
  - DEPRESSED LEVEL OF CONSCIOUSNESS [None]
  - DYSPHAGIA [None]
  - FEELING ABNORMAL [None]
  - MOVEMENT DISORDER [None]
  - PNEUMONIA ASPIRATION [None]
